FAERS Safety Report 22062393 (Version 1)
Quarter: 2023Q1

REPORT INFORMATION
  Report Type: Spontaneous
  Country: US (occurrence: US)
  Receive Date: 20230305
  Receipt Date: 20230305
  Transmission Date: 20230418
  Serious: Yes (Other)
  Sender: FDA-Public Use
  Company Number: US-AMGEN-USASP2023033986

PATIENT
  Age: 81 Year
  Sex: Female

DRUGS (3)
  1. XGEVA [Suspect]
     Active Substance: DENOSUMAB
     Indication: Product used for unknown indication
     Dosage: UNK UNK, QMO
     Route: 065
  2. IBRANCE [Suspect]
     Active Substance: PALBOCICLIB
     Indication: Breast neoplasm
     Dosage: 75 MILLIGRAM
     Route: 065
  3. FASLODEX [Concomitant]
     Active Substance: FULVESTRANT

REACTIONS (6)
  - Invasive lobular breast carcinoma [Unknown]
  - Pleural effusion [Unknown]
  - Dyspnoea [Unknown]
  - Abdominal pain [Unknown]
  - Abdominal distension [Unknown]
  - Gastrointestinal hypermotility [Unknown]
